FAERS Safety Report 8059083-2 (Version None)
Quarter: 2012Q1

REPORT INFORMATION
  Report Type: 
  Country: None (occurrence: None)
  Receive Date: 20120120
  Receipt Date: 20111011
  Transmission Date: 20120608
  Serious: No
  Sender: FDA-Public Use
  Company Number: -BAUSCH-2011BL006952

PATIENT
  Age: 91 Year
  Sex: Male

DRUGS (1)
  1. ALAWAY [Suspect]
     Indication: OCULAR HYPERAEMIA
     Route: 047
     Dates: start: 20111010, end: 20111011

REACTIONS (2)
  - SOMNOLENCE [None]
  - IRRITABILITY [None]
